FAERS Safety Report 7291455-6 (Version None)
Quarter: 2011Q1

REPORT INFORMATION
  Report Type: 
  Country: None (occurrence: None)
  Receive Date: 20110214
  Receipt Date: 20110208
  Transmission Date: 20110831
  Serious: Yes (Hospitalization, Other)
  Sender: FDA-Public Use
  Company Number: DE-PFIZER INC-2011027537

PATIENT
  Age: 87 Year
  Sex: Female

DRUGS (1)
  1. GABAPENTIN [Suspect]
     Indication: EPILEPSY
     Dosage: 300 MG, 3X/DAY
     Route: 048

REACTIONS (7)
  - FLUID INTAKE REDUCED [None]
  - C-REACTIVE PROTEIN INCREASED [None]
  - SOMNOLENCE [None]
  - DEHYDRATION [None]
  - BLOOD CREATININE INCREASED [None]
  - HYPOPHAGIA [None]
  - OVERDOSE [None]
